FAERS Safety Report 16082357 (Version 1)
Quarter: 2019Q1

REPORT INFORMATION
  Report Type: Spontaneous
  Country: GB (occurrence: GB)
  Receive Date: 20190318
  Receipt Date: 20190318
  Transmission Date: 20190418
  Serious: Yes (Hospitalization)
  Sender: FDA-Public Use
  Company Number: GB-CONCORDIA PHARMACEUTICALS INC.-E2B_00019024

PATIENT
  Age: 72 Year
  Sex: Female
  Weight: 54.2 kg

DRUGS (10)
  1. ALLOPURINOL. [Concomitant]
     Active Substance: ALLOPURINOL
  2. RITUXIMAB. [Suspect]
     Active Substance: RITUXIMAB
     Indication: LYMPHOMA
     Route: 042
     Dates: start: 20190201, end: 20190201
  3. FILGRASTIM [Concomitant]
     Active Substance: FILGRASTIM
  4. RANITIDINE. [Concomitant]
     Active Substance: RANITIDINE
  5. CYCLOPHOSPHAMIDE. [Suspect]
     Active Substance: CYCLOPHOSPHAMIDE
     Indication: LYMPHOMA
     Route: 042
     Dates: start: 20190201, end: 20190201
  6. DOXORUBICIN [Suspect]
     Active Substance: DOXORUBICIN
     Indication: LYMPHOMA
     Route: 042
     Dates: start: 20190201, end: 20190201
  7. VINCRISTINE [Suspect]
     Active Substance: VINCRISTINE
     Indication: LYMPHOMA
     Route: 042
     Dates: start: 20190201, end: 20190201
  8. ACICLOVIR [Concomitant]
     Active Substance: ACYCLOVIR
  9. PREDNISOLONE. [Suspect]
     Active Substance: PREDNISOLONE
     Indication: LYMPHOMA
     Dates: start: 20190201, end: 20190201
  10. METOCLOPRAMIDE. [Concomitant]
     Active Substance: METOCLOPRAMIDE

REACTIONS (7)
  - Vomiting [Unknown]
  - Neutropenic sepsis [Unknown]
  - Constipation [Unknown]
  - Malaise [Unknown]
  - Febrile neutropenia [Not Recovered/Not Resolved]
  - Chills [Unknown]
  - Chest pain [Unknown]

NARRATIVE: CASE EVENT DATE: 20190211
